FAERS Safety Report 6415109-0 (Version None)
Quarter: 2009Q4

REPORT INFORMATION
  Report Type: 
  Country: None (occurrence: None)
  Receive Date: 20091027
  Receipt Date: 20091019
  Transmission Date: 20100525
  Serious: Yes (Hospitalization, Other)
  Sender: FDA-Public Use
  Company Number: US-BIOGENIDEC-2008BI031107

PATIENT
  Age: 41 Year
  Sex: Female

DRUGS (9)
  1. TYSABRI [Suspect]
     Indication: MULTIPLE SCLEROSIS
     Route: 042
     Dates: start: 20071119, end: 20080731
  2. COUMADIN [Concomitant]
  3. SENOKOT [Concomitant]
  4. CELEXA [Concomitant]
  5. BACLOFEN [Concomitant]
     Dates: start: 20071024
  6. VALIUM [Concomitant]
  7. LEVAQUIN [Concomitant]
     Dates: start: 20071024
  8. TRIMETHOPRIM [Concomitant]
     Dates: start: 20071024
  9. VICODIN [Concomitant]
     Dates: start: 20071024

REACTIONS (3)
  - BRONCHITIS [None]
  - MORGANELLA INFECTION [None]
  - URINARY TRACT INFECTION [None]
